FAERS Safety Report 21382662 (Version 1)
Quarter: 2022Q3

REPORT INFORMATION
  Report Type: Other
  Country: CN (occurrence: None)
  Receive Date: 20220927
  Receipt Date: 20220927
  Transmission Date: 20221027
  Serious: Yes (Other)
  Sender: FDA-Public Use
  Company Number: CN-ROCHE-3183207

PATIENT
  Age: 77 Year
  Sex: Male
  Weight: 45 kg

DRUGS (1)
  1. ATEZOLIZUMAB [Suspect]
     Active Substance: ATEZOLIZUMAB
     Indication: Lung neoplasm malignant
     Route: 041
     Dates: start: 20220717

REACTIONS (2)
  - Gastrointestinal haemorrhage [Unknown]
  - Myocardial necrosis marker increased [Unknown]
